FAERS Safety Report 7428560-7 (Version None)
Quarter: 2011Q2

REPORT INFORMATION
  Report Type: 
  Country: None (occurrence: None)
  Receive Date: 20110421
  Receipt Date: 20090606
  Transmission Date: 20111010
  Serious: Yes (Hospitalization, Other)
  Sender: FDA-Public Use
  Company Number: US-BAYER-200922411NA

PATIENT
  Age: 61 Year
  Sex: Female
  Weight: 92.517 kg

DRUGS (25)
  1. TRASYLOL [Suspect]
     Indication: CORONARY ARTERY BYPASS
     Dosage: 200 ML, UNK
     Route: 042
     Dates: start: 20071022
  2. FRESH FROZEN PLASMA [Concomitant]
     Dosage: 2 U, UNK
     Dates: start: 20071022
  3. HYDROXYZINE [Concomitant]
     Dosage: 10 MG, Q6HR
  4. ALLEGRA [Concomitant]
     Route: 048
  5. GLYBURIDE [Concomitant]
     Dosage: 10 MG, BID
     Route: 048
  6. PREVACID [Concomitant]
     Dosage: 30 MG, QD
     Route: 048
  7. VANCOMYCIN [Concomitant]
     Dosage: UNK
     Route: 042
     Dates: start: 20071022
  8. PROTAMINE SULFATE [Concomitant]
     Dosage: 350 MG, UNK
     Route: 042
     Dates: start: 20071022
  9. ZOCOR [Concomitant]
     Dosage: 80 MG, QD
     Route: 048
  10. HEPARIN [Concomitant]
     Dosage: 2500 U, UNK
     Route: 042
     Dates: start: 20071022
  11. CHEMOTHERAPEUTICS NOS [Concomitant]
     Indication: PRODUCT USED FOR UNKNOWN INDICATION
  12. ZETIA [Concomitant]
     Dosage: 10 MG, HS
     Route: 048
  13. HEPARIN [Concomitant]
     Dosage: 30000 U, UNK
     Route: 042
     Dates: start: 20071022
  14. TRASYLOL [Suspect]
     Indication: MITRAL VALVE REPLACEMENT
     Dosage: 50 ML/ HOUR
     Route: 042
     Dates: start: 20071022
  15. PACKED RED BLOOD CELLS [Concomitant]
     Dosage: 2 U, UNK
     Dates: start: 20071022
  16. COREG [Concomitant]
     Dosage: 25 MG, BID
     Route: 048
  17. PENTOXIFYLLINE [Concomitant]
     Dosage: 400 MG, TID
     Route: 048
  18. LASIX [Concomitant]
     Dosage: 40 MG, BID
     Route: 048
  19. LISINOPRIL [Concomitant]
     Dosage: 40 MG, QD
     Route: 048
  20. NPH INSULIN [Concomitant]
     Dosage: 8 U, QAM
  21. ASPIRIN [Concomitant]
     Dosage: 81 MG, QD
     Route: 048
     Dates: start: 20070101
  22. PLATELETS [Concomitant]
     Dosage: UNK
     Dates: start: 20071022
  23. ALBUTEROL [Concomitant]
     Dosage: 2 PUFF(S), HS
  24. ALLOPURINOL [Concomitant]
     Dosage: 100 MG, QD
     Route: 048
     Dates: start: 19900101
  25. NPH INSULIN [Concomitant]
     Dosage: 8 U, QPM

REACTIONS (10)
  - RENAL IMPAIRMENT [None]
  - EMOTIONAL DISTRESS [None]
  - ANXIETY [None]
  - UNEVALUABLE EVENT [None]
  - RENAL FAILURE [None]
  - RENAL INJURY [None]
  - CARDIOGENIC SHOCK [None]
  - STRESS [None]
  - FEAR [None]
  - PAIN [None]
